FAERS Safety Report 4370976-X (Version None)
Quarter: 2004Q2

REPORT INFORMATION
  Report Type: 
  Country: None (occurrence: None)
  Receive Date: 20040603
  Receipt Date: 20040603
  Transmission Date: 20050107
  Serious: Yes (Other)
  Sender: FDA-Public Use
  Company Number: None

PATIENT
  Sex: Female

DRUGS (2)
  1. ORTHO CYCLEN-28 [Suspect]
     Indication: CONTRACEPTION
     Dosage: PO ONE DAILY
     Route: 048
     Dates: start: 20030501
  2. ORTHO CYCLEN-28 [Suspect]
     Indication: DYSMENORRHOEA
     Dosage: PO ONE DAILY
     Route: 048
     Dates: start: 20030501

REACTIONS (2)
  - METRORRHAGIA [None]
  - PHARMACEUTICAL PRODUCT COMPLAINT [None]
